FAERS Safety Report 8202113-5 (Version None)
Quarter: 2012Q1

REPORT INFORMATION
  Report Type: 
  Country: None (occurrence: None)
  Receive Date: 20120307
  Receipt Date: 20120222
  Transmission Date: 20120608
  Serious: Yes (Other)
  Sender: FDA-Public Use
  Company Number: IPC201202-000054

PATIENT
  Age: 65 Year
  Sex: Male

DRUGS (4)
  1. OXYCODONE HCL [Concomitant]
  2. LYRICA [Concomitant]
  3. ASPERDIOL [Concomitant]
  4. HYDROXYCHLOROQUINE SULFATE [Suspect]
     Dosage: 200 MG, ONE TIME DAILY
     Dates: start: 20090901

REACTIONS (5)
  - MUSCULAR WEAKNESS [None]
  - MUSCULAR DYSTROPHY [None]
  - ATAXIA [None]
  - NEUROPATHY PERIPHERAL [None]
  - HEADACHE [None]
